FAERS Safety Report 8941900 (Version 1)
Quarter: 2012Q4

REPORT INFORMATION
  Report Type: 
  Country: US (occurrence: US)
  Receive Date: 20121203
  Receipt Date: 20121203
  Transmission Date: 20130627
  Serious: Yes (Congenital Anomaly, Other)
  Sender: FDA-Public Use
  Company Number: US-PFIZER INC-2012299184

PATIENT
  Sex: Female
  Weight: 3.7 kg

DRUGS (6)
  1. ZOLOFT [Suspect]
     Dosage: UNK
     Route: 064
  2. LEXAPRO [Concomitant]
     Dosage: 10 mg, 1x/day
     Route: 064
     Dates: start: 20080627
  3. MACRODANTIN [Concomitant]
     Indication: URINARY TRACT INFECTION
     Dosage: UNK
     Route: 064
     Dates: start: 20080902
  4. TYLENOL [Concomitant]
     Dosage: UNK
     Route: 064
     Dates: start: 20080917
  5. BACTRIM DS [Concomitant]
     Indication: URINARY TRACT INFECTION
     Dosage: Twice daily for 10 days
     Dates: start: 20080917
  6. FLAGYL [Concomitant]
     Dosage: UNK
     Route: 064

REACTIONS (2)
  - Maternal exposure timing unspecified [Unknown]
  - Ventricular septal defect [Unknown]
